FAERS Safety Report 5009477-4 (Version None)
Quarter: 2006Q2

REPORT INFORMATION
  Report Type: 
  Country: None (occurrence: None)
  Receive Date: 20060522
  Receipt Date: 20060511
  Transmission Date: 20061013
  Serious: Yes (Hospitalization)
  Sender: FDA-Public Use
  Company Number: 225032

PATIENT
  Age: 67 Year
  Sex: Male
  Weight: 175 kg

DRUGS (7)
  1. AVASTIN [Suspect]
     Indication: METASTATIC NEOPLASM
     Dosage: 590 MG, INTRAVENOUS
     Route: 042
     Dates: start: 20050718, end: 20050802
  2. ARANESP [Suspect]
     Indication: ANAEMIA
     Dosage: SUBCUTANEOUS
     Route: 058
  3. OXALIPLATIN(OXALIPLATIN) [Suspect]
     Indication: METASTATIC NEOPLASM
     Dosage: 160 MG, INTRAVENOUS
     Route: 042
     Dates: start: 20050718, end: 20050802
  4. LEUCOVORIN CALCIUM [Suspect]
     Indication: METASTATIC NEOPLASM
     Dosage: 380 MG, INTRAVENOUS
     Route: 042
     Dates: start: 20050718, end: 20050803
  5. FLUOROURACIL [Suspect]
     Indication: METASTATIC NEOPLASM
     Dosage: SEE IMAGE
     Route: 042
     Dates: start: 20050718, end: 20050720
  6. FLUOROURACIL [Suspect]
     Indication: METASTATIC NEOPLASM
     Dosage: SEE IMAGE
     Route: 042
     Dates: start: 20050802, end: 20050803
  7. FLUOROURACIL [Suspect]
     Indication: METASTATIC NEOPLASM
     Dosage: SEE IMAGE
     Route: 042
     Dates: start: 20050802, end: 20050804

REACTIONS (7)
  - BILE DUCT OBSTRUCTION [None]
  - DISEASE PROGRESSION [None]
  - HEPATIC FAILURE [None]
  - MALIGNANT NEOPLASM PROGRESSION [None]
  - METASTATIC NEOPLASM [None]
  - PROTHROMBIN TIME PROLONGED [None]
  - THERAPY NON-RESPONDER [None]
